FAERS Safety Report 5572028-X (Version None)
Quarter: 2007Q4

REPORT INFORMATION
  Report Type: 
  Country: None (occurrence: None)
  Receive Date: 20071221
  Receipt Date: 20071213
  Transmission Date: 20080405
  Serious: Yes (Disabling, Other)
  Sender: FDA-Public Use
  Company Number: GB-ABBOTT-07P-167-0426698-00

PATIENT
  Sex: Female
  Weight: 58.566 kg

DRUGS (2)
  1. HUMIRA [Suspect]
     Indication: CROHN'S DISEASE
     Route: 058
     Dates: start: 20061201, end: 20071001
  2. DEPOT [Concomitant]
     Indication: CONTRACEPTION
     Route: 050

REACTIONS (5)
  - MENTAL DISORDER [None]
  - PAIN [None]
  - PSORIASIS [None]
  - RASH [None]
  - RASH PUSTULAR [None]
